FAERS Safety Report 10570279 (Version 1)
Quarter: 2014Q4

REPORT INFORMATION
  Report Type: Spontaneous
  Country: US (occurrence: None)
  Receive Date: 20141106
  Receipt Date: 20141106
  Transmission Date: 20150529
  Serious: No
  Sender: FDA-Public Use
  Company Number: None

PATIENT
  Age: 49 Year
  Sex: Female
  Weight: 72.58 kg

DRUGS (2)
  1. SULFAMETHOXAZOLE AND TRIMETHOPRIM DOUBLE STRENGTH [Suspect]
     Active Substance: SULFAMETHOXAZOLE\TRIMETHOPRIM
     Indication: UPPER RESPIRATORY TRACT INFECTION
     Dosage: 1 PILL
     Route: 048
     Dates: start: 20141031, end: 20141102
  2. SULFAMETHOXAZOLE AND TRIMETHOPRIM DOUBLE STRENGTH [Suspect]
     Active Substance: SULFAMETHOXAZOLE\TRIMETHOPRIM
     Indication: SKIN INFECTION
     Dosage: 1 PILL
     Route: 048
     Dates: start: 20141031, end: 20141102

REACTIONS (5)
  - Pruritus [None]
  - Erythema [None]
  - Urticaria [None]
  - Skin exfoliation [None]
  - Swelling face [None]

NARRATIVE: CASE EVENT DATE: 20141102
